FAERS Safety Report 12316504 (Version 2)
Quarter: 2016Q3

REPORT INFORMATION
  Report Type: Report from Study
  Country: US (occurrence: US)
  Receive Date: 20160429
  Receipt Date: 20160802
  Transmission Date: 20161109
  Serious: No
  Sender: FDA-Public Use
  Company Number: US-AMGEN-USASL2016051708

PATIENT
  Age: 18 Year
  Sex: Female

DRUGS (3)
  1. ENBREL [Suspect]
     Active Substance: ETANERCEPT
     Indication: MULTIPLE SCLEROSIS
     Dosage: UNK
     Route: 065
     Dates: start: 20160121
  2. ENBREL [Suspect]
     Active Substance: ETANERCEPT
     Indication: MIXED CONNECTIVE TISSUE DISEASE
  3. ENBREL [Suspect]
     Active Substance: ETANERCEPT
     Indication: LUPUS VULGARIS

REACTIONS (1)
  - Off label use [Unknown]

NARRATIVE: CASE EVENT DATE: 2016
